FAERS Safety Report 10918248 (Version 3)
Quarter: 2018Q1

REPORT INFORMATION
  Report Type: Spontaneous
  Country: US (occurrence: US)
  Receive Date: 20150316
  Receipt Date: 20180125
  Transmission Date: 20180508
  Serious: Yes (Death, Other)
  Sender: FDA-Public Use
  Company Number: US-ASTELLAS-2015US000089

PATIENT
  Age: 89 Year
  Sex: Male

DRUGS (1)
  1. XTANDI [Suspect]
     Active Substance: ENZALUTAMIDE
     Indication: PROSTATE CANCER
     Route: 048
     Dates: start: 20141203

REACTIONS (8)
  - Bone pain [Unknown]
  - Myalgia [Unknown]
  - Cardio-respiratory arrest [Fatal]
  - Flushing [Unknown]
  - Anxiety [Unknown]
  - Erythema [Unknown]
  - Dizziness [Unknown]
  - Malignant neoplasm progression [Fatal]

NARRATIVE: CASE EVENT DATE: 20160510
